FAERS Safety Report 10926226 (Version 1)
Quarter: 2015Q1

REPORT INFORMATION
  Report Type: Spontaneous
  Country: US (occurrence: US)
  Receive Date: 20150318
  Receipt Date: 20150318
  Transmission Date: 20150721
  Serious: No
  Sender: FDA-Public Use
  Company Number: US-ELI_LILLY_AND_COMPANY-US201502006681

PATIENT
  Sex: Female

DRUGS (16)
  1. STRATTERA [Suspect]
     Active Substance: ATOMOXETINE HYDROCHLORIDE
     Dosage: 25 MG, UNKNOWN
     Route: 065
  2. STRATTERA [Suspect]
     Active Substance: ATOMOXETINE HYDROCHLORIDE
     Dosage: 40 MG, QD
     Route: 065
  3. FIBER [Concomitant]
     Active Substance: PSYLLIUM HUSK
  4. STRATTERA [Suspect]
     Active Substance: ATOMOXETINE HYDROCHLORIDE
     Indication: ATTENTION DEFICIT/HYPERACTIVITY DISORDER
     Dosage: 18 MG, UNKNOWN
     Route: 065
     Dates: start: 2005
  5. FIBER [Concomitant]
     Active Substance: PSYLLIUM HUSK
  6. CHONDROITIN SULFATE (BOVINE)\GLUCOSAMINE SULFATE [Concomitant]
     Active Substance: CHONDROITIN SULFATE (BOVINE)\GLUCOSAMINE SULFATE
  7. STRATTERA [Suspect]
     Active Substance: ATOMOXETINE HYDROCHLORIDE
     Dosage: 40 MG, BID
  8. MSM [Concomitant]
     Active Substance: DIMETHYL SULFONE
  9. ASPIRIN                            /00002701/ [Concomitant]
     Active Substance: ASPIRIN
  10. FISH OIL [Concomitant]
     Active Substance: FISH OIL
  11. STRATTERA [Suspect]
     Active Substance: ATOMOXETINE HYDROCHLORIDE
     Dosage: 40 MG, QD
     Route: 065
  12. VITAMIN C [Concomitant]
     Active Substance: ASCORBIC ACID
  13. VITAMIN E 2000 IU PLUS SELENIUM [Concomitant]
  14. KELP                               /01214901/ [Concomitant]
  15. CURCUMIN [Concomitant]
     Active Substance: CURCUMIN
  16. B COMPLEX                          /00322001/ [Concomitant]

REACTIONS (4)
  - Incontinence [Recovered/Resolved]
  - Libido decreased [Unknown]
  - Constipation [Unknown]
  - Polyuria [Recovered/Resolved]

NARRATIVE: CASE EVENT DATE: 2014
